FAERS Safety Report 5857991-1 (Version None)
Quarter: 2008Q3

REPORT INFORMATION
  Report Type: 
  Country: None (occurrence: None)
  Receive Date: 20080826
  Receipt Date: 20080819
  Transmission Date: 20090109
  Serious: Yes (Other)
  Sender: FDA-Public Use
  Company Number: IT-AVENTIS-200817752GDDC

PATIENT
  Age: 40 Year
  Sex: Male

DRUGS (7)
  1. LEFLUNOMIDE [Suspect]
  2. LEFLUNOMIDE [Suspect]
  3. TACROLIMUS [Concomitant]
     Dosage: DOSE: UNK
  4. TACROLIMUS [Concomitant]
     Dosage: DOSE: DOSAGE DECREASED
  5. MYCOPHENOLATE MOFETIL [Concomitant]
     Dosage: DOSE: UNK
  6. CORTICOSTEROIDS [Concomitant]
     Dosage: DOSE: UNK
  7. CORTICOSTEROIDS [Concomitant]
     Dosage: DOSE: DOSAGE DECREASED

REACTIONS (2)
  - HEPATIC ENZYME INCREASED [None]
  - OFF LABEL USE [None]
